FAERS Safety Report 7348098-5 (Version None)
Quarter: 2011Q1

REPORT INFORMATION
  Report Type: 
  Country: None (occurrence: None)
  Receive Date: 20110311
  Receipt Date: 20110308
  Transmission Date: 20110831
  Serious: Yes (Other)
  Sender: FDA-Public Use
  Company Number: DE-PFIZER INC-2011025470

PATIENT
  Age: 62 Year
  Sex: Female

DRUGS (1)
  1. LYRICA [Suspect]
     Indication: NEURALGIA
     Dosage: 150 MG, 1X/DAY
     Route: 048
     Dates: start: 20110124

REACTIONS (15)
  - DRUG WITHDRAWAL SYNDROME [None]
  - HYPERSENSITIVITY [None]
  - EATING DISORDER [None]
  - DRUG DEPENDENCE [None]
  - RESPIRATORY TRACT OEDEMA [None]
  - MALAISE [None]
  - ANORECTAL DISCOMFORT [None]
  - MUCOSAL EXFOLIATION [None]
  - GASTROINTESTINAL MOTILITY DISORDER [None]
  - THROAT IRRITATION [None]
  - ORAL DISCOMFORT [None]
  - DYSGEUSIA [None]
  - RESPIRATORY TRACT IRRITATION [None]
  - PHARYNGEAL OEDEMA [None]
  - OROPHARYNGEAL BLISTERING [None]
